FAERS Safety Report 11461195 (Version 1)
Quarter: 2015Q3

REPORT INFORMATION
  Report Type: Spontaneous
  Country: US (occurrence: US)
  Receive Date: 20150831
  Receipt Date: 20150831
  Transmission Date: 20151125
  Serious: No
  Sender: FDA-Public Use
  Company Number: US-ELI_LILLY_AND_COMPANY-US201007000285

PATIENT
  Age: 45 Year
  Sex: Female

DRUGS (2)
  1. CYMBALTA [Suspect]
     Active Substance: DULOXETINE HYDROCHLORIDE
     Dosage: 20 MG, UNK
     Dates: start: 2009, end: 20100504
  2. CYMBALTA [Suspect]
     Active Substance: DULOXETINE HYDROCHLORIDE
     Dosage: 30 MG, UNK
     Dates: start: 2009, end: 20100504

REACTIONS (22)
  - Flatulence [Unknown]
  - Feeling jittery [Unknown]
  - Malaise [Unknown]
  - Paraesthesia oral [Unknown]
  - Tooth disorder [Unknown]
  - Abdominal discomfort [Unknown]
  - Tremor [Unknown]
  - Drug ineffective [Unknown]
  - Dry mouth [Unknown]
  - Glossodynia [Unknown]
  - Gingival recession [Unknown]
  - Dizziness [Unknown]
  - Anxiety [Not Recovered/Not Resolved]
  - Constipation [Unknown]
  - Disturbance in attention [Unknown]
  - Palpitations [Unknown]
  - Nausea [Unknown]
  - Insomnia [Unknown]
  - Diarrhoea [Unknown]
  - Weight decreased [Unknown]
  - Memory impairment [Unknown]
  - Vision blurred [Unknown]
